FAERS Safety Report 13088771 (Version 1)
Quarter: 2017Q1

REPORT INFORMATION
  Report Type: Spontaneous
  Country: US (occurrence: US)
  Receive Date: 20170105
  Receipt Date: 20170105
  Transmission Date: 20170428
  Serious: Yes (Other)
  Sender: FDA-Public Use
  Company Number: None

PATIENT
  Age: 39 Year
  Sex: Female
  Weight: 56.7 kg

DRUGS (4)
  1. PREDNISONE 20MG TABLET WEST WARD PHARMACEUTICALS [Suspect]
     Active Substance: PREDNISONE
     Indication: ARTHRITIS
     Dosage: ?          QUANTITY:12;?
     Route: 048
     Dates: start: 20161205, end: 20161209
  2. DIAZEPAM. [Concomitant]
     Active Substance: DIAZEPAM
  3. IBUPROFEN. [Concomitant]
     Active Substance: IBUPROFEN
  4. OXYCODONE [Concomitant]
     Active Substance: OXYCODONE

REACTIONS (8)
  - Fatigue [None]
  - Blood cortisol decreased [None]
  - Tenosynovitis [None]
  - Drug monitoring procedure not performed [None]
  - Drug withdrawal syndrome [None]
  - Joint injury [None]
  - Nausea [None]
  - Arthralgia [None]

NARRATIVE: CASE EVENT DATE: 20161211
